FAERS Safety Report 14986043 (Version 2)
Quarter: 2018Q3

REPORT INFORMATION
  Report Type: Spontaneous
  Country: FR (occurrence: FR)
  Receive Date: 20180607
  Receipt Date: 20180928
  Transmission Date: 20181010
  Serious: Yes (Other)
  Sender: FDA-Public Use
  Company Number: FR-BAUSCH-BL-2018-016032

PATIENT
  Age: 50 Year
  Sex: Female

DRUGS (8)
  1. ORELOX [Suspect]
     Active Substance: CEFPODOXIME
     Indication: EAR INFECTION
     Route: 065
     Dates: start: 20120201, end: 20120210
  2. CEFPODOXIME [Suspect]
     Active Substance: CEFPODOXIME
     Indication: EAR INFECTION
     Route: 065
     Dates: start: 20121103
  3. CEFPODOXIME [Suspect]
     Active Substance: CEFPODOXIME
     Indication: RASH GENERALISED
  4. OFLOXACIN. [Suspect]
     Active Substance: OFLOXACIN
     Indication: EAR INFECTION
     Route: 001
     Dates: start: 20120210, end: 20120214
  5. OFLOXACIN. [Suspect]
     Active Substance: OFLOXACIN
     Indication: EAR INFECTION
     Route: 048
     Dates: start: 20121201
  6. ORELOX [Suspect]
     Active Substance: CEFPODOXIME
     Indication: SEASONAL ALLERGY
  7. ORELOX [Suspect]
     Active Substance: CEFPODOXIME
     Indication: RASH GENERALISED
  8. CEFPODOXIME [Suspect]
     Active Substance: CEFPODOXIME
     Indication: SEASONAL ALLERGY

REACTIONS (1)
  - Type I hypersensitivity [Unknown]

NARRATIVE: CASE EVENT DATE: 20120214
